FAERS Safety Report 16148373 (Version 1)
Quarter: 2019Q2

REPORT INFORMATION
  Report Type: Spontaneous
  Country: GB (occurrence: GB)
  Receive Date: 20190402
  Receipt Date: 20190402
  Transmission Date: 20190711
  Serious: Yes (Other)
  Sender: FDA-Public Use
  Company Number: GB-PFIZER INC-2019139249

PATIENT
  Age: 29 Year
  Sex: Female
  Weight: 54 kg

DRUGS (2)
  1. FLUCONAZOLE. [Suspect]
     Active Substance: FLUCONAZOLE
     Indication: VULVOVAGINAL CANDIDIASIS
     Dosage: 150 MG
     Dates: start: 20190307
  2. CANESTEN [Concomitant]
     Active Substance: CLOTRIMAZOLE
     Dosage: 1DF, 1X/DAY , INSERT AT NIGHT FOR THREE NIGHTS
     Dates: start: 20190110, end: 20190113

REACTIONS (2)
  - Lip blister [Recovered/Resolved]
  - Lip swelling [Recovered/Resolved]

NARRATIVE: CASE EVENT DATE: 20190307
